FAERS Safety Report 19911917 (Version 1)
Quarter: 2021Q4

REPORT INFORMATION
  Report Type: Spontaneous
  Country: US (occurrence: US)
  Receive Date: 20211002
  Receipt Date: 20211002
  Transmission Date: 20220303
  Serious: Yes (Disabling)
  Sender: FDA-Public Use
  Company Number: None

PATIENT
  Sex: Male
  Weight: 76.95 kg

DRUGS (2)
  1. TINACTIN [Suspect]
     Active Substance: TOLNAFTATE
     Indication: Tinea pedis
     Route: 061
     Dates: start: 20210630, end: 20210930
  2. TINACTIN [Suspect]
     Active Substance: TOLNAFTATE
     Indication: Tinea pedis
     Dates: start: 20210630, end: 20210930

REACTIONS (5)
  - Dry skin [None]
  - Skin exfoliation [None]
  - Skin exfoliation [None]
  - Pain in extremity [None]
  - Plantar fasciitis [None]
